FAERS Safety Report 4489748-0 (Version None)
Quarter: 2004Q4

REPORT INFORMATION
  Report Type: 
  Country: None (occurrence: None)
  Receive Date: 20041026
  Receipt Date: 20041013
  Transmission Date: 20050328
  Serious: Yes (Hospitalization)
  Sender: FDA-Public Use
  Company Number: 2004078495

PATIENT
  Age: 60 Year
  Sex: Female

DRUGS (1)
  1. VIBRAMYCIN [Suspect]
     Indication: MALARIA

REACTIONS (4)
  - APHAGIA [None]
  - OEDEMA PERIPHERAL [None]
  - RASH [None]
  - THROAT IRRITATION [None]
